FAERS Safety Report 18531345 (Version 1)
Quarter: 2020Q4

REPORT INFORMATION
  Report Type: Spontaneous
  Country: US (occurrence: US)
  Receive Date: 20201122
  Receipt Date: 20201122
  Transmission Date: 20210114
  Serious: Yes (Other)
  Sender: FDA-Public Use
  Company Number: US-PURDUE-USA-2020-0150068

PATIENT
  Age: 52 Year
  Sex: Male
  Weight: 90.7 kg

DRUGS (7)
  1. HYDROCODONE BITARTRATE (SIMILAR TO NDA 206627) [Suspect]
     Active Substance: HYDROCODONE BITARTRATE
     Indication: PAIN IN EXTREMITY
  2. ZETIA [Concomitant]
     Active Substance: EZETIMIBE
     Indication: BLOOD TRIGLYCERIDES ABNORMAL
     Dosage: 10 MG, UNK
     Route: 065
  3. HYDROCODONE BITARTRATE (SIMILAR TO NDA 206627) [Suspect]
     Active Substance: HYDROCODONE BITARTRATE
     Indication: PAIN IN EXTREMITY
  4. VICODIN [Suspect]
     Active Substance: ACETAMINOPHEN\HYDROCODONE BITARTRATE
     Indication: PAIN
     Dosage: 10/325 MGUNK
     Route: 065
     Dates: start: 20070927, end: 201706
  5. CRESTOR [Concomitant]
     Active Substance: ROSUVASTATIN CALCIUM
     Indication: BLOOD CHOLESTEROL ABNORMAL
     Dosage: 10 MG, UNK
     Route: 065
  6. HYDROCODONE BITARTRATE (SIMILAR TO NDA 206627) [Suspect]
     Active Substance: HYDROCODONE BITARTRATE
     Indication: NEURALGIA
     Dosage: 10 MG, QID
     Route: 048
     Dates: start: 20070927, end: 20150505
  7. VYTORIN [Concomitant]
     Active Substance: EZETIMIBE\SIMVASTATIN
     Indication: PRODUCT USED FOR UNKNOWN INDICATION
     Dosage: 10 MG, DAILY
     Route: 065

REACTIONS (6)
  - Drug dependence [Unknown]
  - Anger [Recovered/Resolved]
  - Depression [Recovered/Resolved]
  - Sleep deficit [Recovered/Resolved]
  - Substance use disorder [Unknown]
  - Pain [Recovered/Resolved]

NARRATIVE: CASE EVENT DATE: 200801
